FAERS Safety Report 11318299 (Version 2)
Quarter: 2017Q2

REPORT INFORMATION
  Report Type: Spontaneous
  Country: US (occurrence: US)
  Receive Date: 20150728
  Receipt Date: 20170526
  Transmission Date: 20170829
  Serious: Yes (Hospitalization, Other)
  Sender: FDA-Public Use
  Company Number: US-GLAXOSMITHKLINE-US2015107309

PATIENT
  Age: 66 Year
  Sex: Female

DRUGS (7)
  1. CARVEDILOL. [Suspect]
     Active Substance: CARVEDILOL
     Indication: MYOCARDIAL INFARCTION
     Dosage: 25 MG, BID
     Route: 048
     Dates: start: 2005
  2. LOVASTATIN. [Concomitant]
     Active Substance: LOVASTATIN
  3. ADVAIR HFA [Suspect]
     Active Substance: FLUTICASONE PROPIONATE\SALMETEROL XINAFOATE
     Indication: DYSPNOEA
     Dosage: UNK, SINGLE
     Dates: start: 2015, end: 2015
  4. COREG CR [Suspect]
     Active Substance: CARVEDILOL PHOSPHATE
     Indication: ANTICOAGULANT THERAPY
     Dosage: 40 MG, 1D
     Route: 048
     Dates: start: 200506
  5. GLIPIZIDE. [Concomitant]
     Active Substance: GLIPIZIDE
  6. COREG CR [Suspect]
     Active Substance: CARVEDILOL PHOSPHATE
     Indication: CARDIAC DISORDER
  7. LISINOPRIL. [Concomitant]
     Active Substance: LISINOPRIL

REACTIONS (4)
  - Breast cancer stage IV [Not Recovered/Not Resolved]
  - Breast cancer [Not Recovered/Not Resolved]
  - Asthenia [Recovered/Resolved]
  - Mastectomy [Recovering/Resolving]

NARRATIVE: CASE EVENT DATE: 2005
